FAERS Safety Report 23811296 (Version 1)
Quarter: 2024Q2

REPORT INFORMATION
  Report Type: Report from Study
  Country: NL (occurrence: NL)
  Receive Date: 20240502
  Receipt Date: 20240502
  Transmission Date: 20240716
  Serious: Yes (Life-Threatening)
  Sender: FDA-Public Use
  Company Number: NL-ABBVIE-5741912

PATIENT
  Sex: Female

DRUGS (6)
  1. CARBIDOPA\LEVODOPA [Suspect]
     Active Substance: CARBIDOPA\LEVODOPA
     Indication: Parkinson^s disease
     Dosage: MD: 12.0 ML, CD: 4.3 ML/H, ED: 3.5 ML
     Route: 050
     Dates: start: 20231115, end: 20240315
  2. CARBIDOPA\LEVODOPA [Suspect]
     Active Substance: CARBIDOPA\LEVODOPA
     Dosage: MD: 12.0 ML, CD: 4.3 ML/H, ED: 3.5 ML
     Route: 050
     Dates: start: 20240315, end: 20240427
  3. CARBIDOPA\LEVODOPA [Suspect]
     Active Substance: CARBIDOPA\LEVODOPA
     Route: 050
     Dates: start: 20161221
  4. LEVODOPA/CARBIDOPA PCH RETARD [Concomitant]
     Indication: Parkinson^s disease
  5. MOVICOLON [Concomitant]
     Active Substance: POLYETHYLENE GLYCOL 3350\POTASSIUM CHLORIDE\SODIUM BICARBONATE\SODIUM CHLORIDE
     Indication: Abnormal faeces
  6. LEVODOPA [Concomitant]
     Active Substance: LEVODOPA
     Indication: Parkinson^s disease

REACTIONS (3)
  - Terminal state [Not Recovered/Not Resolved]
  - Fluid retention [Not Recovered/Not Resolved]
  - Cardiac dysfunction [Not Recovered/Not Resolved]
